FAERS Safety Report 25608365 (Version 1)
Quarter: 2025Q3

REPORT INFORMATION
  Report Type: Spontaneous
  Country: EU (occurrence: EU)
  Receive Date: 20250726
  Receipt Date: 20250726
  Transmission Date: 20251021
  Serious: Yes (Death)
  Sender: AMGEN
  Company Number: EU-AMGEN-DEUSP2025142316

PATIENT

DRUGS (5)
  1. PREDNISONE [Suspect]
     Active Substance: PREDNISONE
     Indication: B-cell lymphoma recurrent
     Route: 065
  2. VENETOCLAX [Concomitant]
     Active Substance: VENETOCLAX
     Indication: B-cell lymphoma recurrent
  3. IBRUTINIB [Concomitant]
     Active Substance: IBRUTINIB
     Indication: B-cell lymphoma recurrent
  4. OBINUTUZUMAB [Concomitant]
     Active Substance: OBINUTUZUMAB
     Indication: B-cell lymphoma recurrent
  5. LENALIDOMIDE [Concomitant]
     Active Substance: LENALIDOMIDE
     Indication: B-cell lymphoma recurrent

REACTIONS (1)
  - Ill-defined disorder [Fatal]
